FAERS Safety Report 6545842-1 (Version None)
Quarter: 2010Q1

REPORT INFORMATION
  Report Type: 
  Country: None (occurrence: None)
  Receive Date: 20100121
  Receipt Date: 20100111
  Transmission Date: 20100710
  Serious: Yes (Other)
  Sender: FDA-Public Use
  Company Number: DE-AMGEN-US374825

PATIENT
  Sex: Female

DRUGS (13)
  1. ENBREL [Suspect]
     Indication: PSORIATIC ARTHROPATHY
     Route: 058
     Dates: start: 20091006, end: 20091006
  2. IBUPROFEN [Concomitant]
  3. METFORMIN HYDROCHLORIDE [Concomitant]
  4. DOXAZOSIN MESYLATE [Concomitant]
     Dosage: 4MG IN THE MORNING AND 8MG IN THE EVENING
  5. BIPRETERAX [Concomitant]
  6. SIMVASTATIN [Concomitant]
  7. METHOTREXATE [Concomitant]
     Dosage: EVERY WEDNESDAY: 10MG IN THE MORNING AND 15MG IN THE EVENING
     Route: 048
  8. FOLIC ACID [Concomitant]
     Dosage: 5MG EVERY THURSDAY
     Route: 048
  9. PREDNISOLONE [Concomitant]
     Dosage: 10MG IN THE MORNING AND 5MG IN THE EVENING
  10. PREDNISOLONE [Concomitant]
     Dosage: 5MG IN THE MORNING AND 2.5MG IN THE EVENING
  11. PREDNISOLONE [Concomitant]
     Dosage: 4MG IN THE MORNING AND 2MG IN THE EVENING
  12. PANTOPRAZOLE [Concomitant]
     Dosage: 1 DOSE FORM ONCE PER DAY (IN THE MORNING)
  13. DOXEPIN HCL [Concomitant]

REACTIONS (3)
  - ANAPHYLACTIC REACTION [None]
  - ASTHENIA [None]
  - MUSCULAR WEAKNESS [None]
